FAERS Safety Report 13654833 (Version 2)
Quarter: 2017Q2

REPORT INFORMATION
  Report Type: Spontaneous
  Country: NL (occurrence: NL)
  Receive Date: 20170615
  Receipt Date: 20170629
  Transmission Date: 20170830
  Serious: Yes (Other)
  Sender: FDA-Public Use
  Company Number: NL-SUN PHARMACEUTICAL INDUSTRIES LTD-2017RR-142727

PATIENT
  Age: 1 Year
  Sex: Female

DRUGS (1)
  1. TEMOZOLOMIDE. [Suspect]
     Active Substance: TEMOZOLOMIDE
     Indication: BRAIN NEOPLASM
     Dosage: UNK
     Route: 065

REACTIONS (4)
  - Refusal of treatment by patient [Unknown]
  - Incorrect route of drug administration [Unknown]
  - Drug dose omission [Unknown]
  - Off label use [Unknown]
